FAERS Safety Report 7367152-5 (Version None)
Quarter: 2011Q1

REPORT INFORMATION
  Report Type: 
  Country: None (occurrence: None)
  Receive Date: 20110322
  Receipt Date: 20110310
  Transmission Date: 20110831
  Serious: Yes (Death, Hospitalization, Disabling, Other)
  Sender: FDA-Public Use
  Company Number: US-CELGENEUS-163-21880-10111492

PATIENT
  Sex: Male
  Weight: 91.254 kg

DRUGS (13)
  1. MOXALICAN [Concomitant]
     Dosage: 50
     Route: 065
  2. DEXAMETHASONE [Concomitant]
     Indication: MULTIPLE MYELOMA
     Route: 065
     Dates: start: 20100101
  3. COUMADIN [Concomitant]
     Route: 065
  4. REVLIMID [Suspect]
     Dosage: 25 MILLIGRAM
     Route: 048
     Dates: start: 20101101
  5. VYTORIN [Concomitant]
     Dosage: 10/40
     Route: 065
  6. ASPIRIN [Concomitant]
     Route: 065
  7. VELCADE [Suspect]
     Indication: MULTIPLE MYELOMA
     Route: 065
     Dates: start: 20100101
  8. PLAVIX [Concomitant]
     Indication: PROPHYLAXIS
     Dosage: 75 MILLIGRAM
     Route: 065
  9. DIOVAN [Concomitant]
     Dosage: 160/12.5
     Route: 065
  10. METOPROLOL [Concomitant]
     Dosage: 50 MILLIGRAM
     Route: 065
  11. REVLIMID [Suspect]
     Indication: MULTIPLE MYELOMA
     Dosage: 25 MILLIGRAM
     Route: 048
     Dates: start: 20100816, end: 20101001
  12. REVLIMID [Suspect]
     Dosage: 10 MILLIGRAM
     Route: 048
     Dates: start: 20110101
  13. PRILOSEC [Concomitant]
     Dosage: 20
     Route: 065

REACTIONS (5)
  - NEURALGIA [None]
  - ISCHAEMIC STROKE [None]
  - DEATH [None]
  - NEUROPATHY PERIPHERAL [None]
  - BLOOD BILIRUBIN INCREASED [None]
